FAERS Safety Report 17782142 (Version 1)
Quarter: 2020Q2

REPORT INFORMATION
  Report Type: Spontaneous
  Country: US (occurrence: US)
  Receive Date: 20200513
  Receipt Date: 20200513
  Transmission Date: 20200714
  Serious: No
  Sender: FDA-Public Use
  Company Number: None

PATIENT
  Age: 62 Year
  Sex: Female

DRUGS (1)
  1. AUBAGIO [Suspect]
     Active Substance: TERIFLUNOMIDE
     Route: 048
     Dates: start: 202003

REACTIONS (5)
  - Swollen tongue [None]
  - Drug hypersensitivity [None]
  - Swelling face [None]
  - Oedema peripheral [None]
  - Headache [None]

NARRATIVE: CASE EVENT DATE: 20200502
